FAERS Safety Report 9681804 (Version 2)
Quarter: 2013Q4

REPORT INFORMATION
  Report Type: Spontaneous
  Country: US (occurrence: US)
  Receive Date: 20131111
  Receipt Date: 20131120
  Transmission Date: 20140711
  Serious: Yes (Death, Hospitalization, Other)
  Sender: FDA-Public Use
  Company Number: US-ABBVIE-13P-163-1167005-00

PATIENT
  Age: 60 Year
  Sex: Male
  Weight: 68.1 kg

DRUGS (9)
  1. HUMIRA [Suspect]
     Indication: CROHN^S DISEASE
     Dates: start: 2010, end: 2010
  2. HUMIRA [Suspect]
     Dates: start: 2010, end: 2010
  3. HUMIRA [Suspect]
     Dates: start: 2013, end: 2013
  4. HUMIRA [Suspect]
     Dates: start: 2013, end: 20131031
  5. MERCAPTOPURINE [Concomitant]
     Indication: CROHN^S DISEASE
  6. VITAMIN B12 [Concomitant]
     Indication: CROHN^S DISEASE
  7. COLESTRAMINE [Concomitant]
     Indication: CROHN^S DISEASE
  8. TRAMADOL [Concomitant]
     Indication: PAIN
  9. INFLUENZA VACCINE [Concomitant]
     Indication: INFLUENZA IMMUNISATION

REACTIONS (17)
  - Renal failure [Fatal]
  - Pneumothorax [Fatal]
  - Endocarditis [Fatal]
  - Sepsis [Fatal]
  - Bacterial infection [Fatal]
  - Pericardial effusion [Fatal]
  - Fungal infection [Fatal]
  - Cough [Not Recovered/Not Resolved]
  - Gait disturbance [Not Recovered/Not Resolved]
  - Asthenia [Not Recovered/Not Resolved]
  - Sinusitis [Not Recovered/Not Resolved]
  - Rhinorrhoea [Not Recovered/Not Resolved]
  - Cardiac murmur [Recovered/Resolved]
  - Cardiac valve disease [Recovered/Resolved]
  - Aortic aneurysm [Recovered/Resolved]
  - Dizziness [Recovered/Resolved]
  - Squamous cell carcinoma of skin [Recovered/Resolved]
